FAERS Safety Report 4918413-8 (Version None)
Quarter: 2006Q1

REPORT INFORMATION
  Report Type: 
  Country: None (occurrence: None)
  Receive Date: 20060222
  Receipt Date: 20050815
  Transmission Date: 20060701
  Serious: Yes (Other)
  Sender: FDA-Public Use
  Company Number: US-BRISTOL-MYERS SQUIBB COMPANY-13078688

PATIENT
  Age: 64 Year
  Sex: Female

DRUGS (3)
  1. ESTRACE [Suspect]
     Indication: MENOPAUSE
     Dates: start: 19940101, end: 20020101
  2. ESTRADIOL [Suspect]
     Indication: MENOPAUSE
     Dosage: DOSAGE FORM = 1-5 MG INJECTION
     Dates: start: 19900101, end: 19940101
  3. MEDROXYPROGESTERONE ACETATE [Suspect]
     Indication: HORMONE REPLACEMENT THERAPY

REACTIONS (1)
  - BREAST CANCER [None]
